FAERS Safety Report 7157340-5 (Version None)
Quarter: 2010Q4

REPORT INFORMATION
  Report Type: 
  Country: None (occurrence: None)
  Receive Date: 20101214
  Receipt Date: 20101122
  Transmission Date: 20110411
  Serious: No
  Sender: FDA-Public Use
  Company Number: US-PFIZER INC-US-WYE-H18280010

PATIENT
  Age: 28 Year
  Sex: Male
  Weight: 83.9 kg

DRUGS (4)
  1. ADVIL CONGESTION RELIEF [Suspect]
     Indication: SINUS HEADACHE
     Dosage: ONE TABLET TWICE (FOUR HOURS APART)
     Route: 048
     Dates: start: 20101020, end: 20101020
  2. ADVIL CONGESTION RELIEF [Suspect]
     Indication: RHINORRHOEA
  3. ADVIL CONGESTION RELIEF [Suspect]
     Indication: COUGH
  4. ADVIL CONGESTION RELIEF [Suspect]
     Indication: OROPHARYNGEAL PAIN

REACTIONS (1)
  - DRUG INEFFECTIVE [None]
